FAERS Safety Report 6434045-7 (Version None)
Quarter: 2009Q4

REPORT INFORMATION
  Report Type: 
  Country: None (occurrence: None)
  Receive Date: 20091110
  Receipt Date: 20091102
  Transmission Date: 20100525
  Serious: Yes (Disabling)
  Sender: FDA-Public Use
  Company Number: NZ-ASTRAZENECA-2009SE23713

PATIENT
  Age: 793 Month
  Sex: Female

DRUGS (3)
  1. CANDESARTAN CILEXETIL [Suspect]
     Route: 048
     Dates: start: 20020201
  2. BENDROFLUAZIDE [Concomitant]
  3. INFLUENZA VIRUS VACCINE INACT [Concomitant]
     Route: 030
     Dates: start: 20040517, end: 20040517

REACTIONS (1)
  - ALOPECIA [None]
